FAERS Safety Report 5355806-1 (Version None)
Quarter: 2007Q2

REPORT INFORMATION
  Report Type: 
  Country: None (occurrence: None)
  Receive Date: 20070611
  Receipt Date: 20070611
  Transmission Date: 20071010
  Serious: Yes (Other)
  Sender: FDA-Public Use
  Company Number: None

PATIENT
  Sex: Male
  Weight: 104.3273 kg

DRUGS (1)
  1. AMPICILLIN [Suspect]
     Indication: URINARY TRACT INFECTION
     Dosage: 1GM Q6H IV DRIP
     Route: 041
     Dates: start: 20070608, end: 20070608

REACTIONS (3)
  - LIVEDO RETICULARIS [None]
  - PAIN IN JAW [None]
  - SWOLLEN TONGUE [None]
